FAERS Safety Report 8545253-3 (Version None)
Quarter: 2012Q3

REPORT INFORMATION
  Report Type: 
  Country: None (occurrence: None)
  Receive Date: 20120727
  Receipt Date: 20120716
  Transmission Date: 20120928
  Serious: Yes (Hospitalization, Other)
  Sender: FDA-Public Use
  Company Number: PHHO2012HU010501

PATIENT
  Sex: Female
  Weight: 70.6 kg

DRUGS (6)
  1. GILENYA [Suspect]
     Indication: MULTIPLE SCLEROSIS
     Dosage: 0.5 MG, QD
     Route: 048
     Dates: start: 20110301, end: 20120605
  2. POTASSIUM CITRATE [Concomitant]
     Indication: ADJUVANT THERAPY
     Dosage: 1 G, QD
     Route: 042
     Dates: start: 20120622
  3. QUAMATEL [Concomitant]
     Indication: ADJUVANT THERAPY
     Dosage: 20 MG, QD
     Route: 048
     Dates: start: 20120623
  4. XANAX [Concomitant]
     Indication: ANXIETY
     Dosage: 0.25 MG, BID
     Dates: start: 20120702
  5. SALSOL A [Concomitant]
     Dosage: 500 ML, QD
     Route: 042
     Dates: start: 20120623
  6. SALSOL A [Concomitant]
     Dosage: 500 ML, QD
     Route: 042
     Dates: start: 20120704

REACTIONS (1)
  - REBOUND EFFECT [None]
